FAERS Safety Report 16357363 (Version 1)
Quarter: 2019Q2

REPORT INFORMATION
  Report Type: Spontaneous
  Country: FR (occurrence: FR)
  Receive Date: 20190527
  Receipt Date: 20190527
  Transmission Date: 20190711
  Serious: Yes (Hospitalization)
  Sender: FDA-Public Use
  Company Number: FR-B.I. PHARMACEUTICALS,INC./RIDGEFIELD-2019-12-001628

PATIENT
  Age: 73 Year
  Sex: Female
  Weight: 96 kg

DRUGS (6)
  1. BRICANYL [Suspect]
     Active Substance: TERBUTALINE SULFATE
     Indication: PRODUCT USED FOR UNKNOWN INDICATION
     Route: 055
     Dates: start: 20190323, end: 20190417
  2. ATROVENT [Suspect]
     Active Substance: IPRATROPIUM BROMIDE
     Indication: PRODUCT USED FOR UNKNOWN INDICATION
     Route: 055
     Dates: start: 20190323, end: 20190406
  3. CEFEPIME [Suspect]
     Active Substance: CEFEPIME HYDROCHLORIDE
     Indication: INFECTION
     Route: 065
     Dates: start: 20190323, end: 20190404
  4. ROVAMYCINE [Suspect]
     Active Substance: SPIRAMYCIN
     Indication: INFECTION
     Route: 065
     Dates: start: 20190323, end: 20190404
  5. LOVENOX [Suspect]
     Active Substance: ENOXAPARIN SODIUM
     Indication: PRODUCT USED FOR UNKNOWN INDICATION
     Route: 058
     Dates: end: 20190408
  6. IOMERON [Suspect]
     Active Substance: IOMEPROL
     Indication: COMPUTERISED TOMOGRAM
     Dosage: FORM STRENGTH: (350 MG IODE/ML), SOLUTION INJECTABLE
     Route: 065
     Dates: start: 20190330, end: 20190330

REACTIONS (3)
  - Pruritus [Recovering/Resolving]
  - Acute kidney injury [Recovering/Resolving]
  - Rash morbilliform [Recovering/Resolving]

NARRATIVE: CASE EVENT DATE: 201903
